FAERS Safety Report 12601837 (Version 1)
Quarter: 2016Q3

REPORT INFORMATION
  Report Type: Spontaneous
  Country: DE (occurrence: DE)
  Receive Date: 20160728
  Receipt Date: 20160728
  Transmission Date: 20161109
  Serious: Yes (Other)
  Sender: FDA-Public Use
  Company Number: DE-MYLANLABS-2015M1026345

PATIENT

DRUGS (2)
  1. AMITRIPTYLIN-DURA 25 MG [Suspect]
     Active Substance: AMITRIPTYLINE HYDROCHLORIDE
     Dosage: 25 MG, UNK
  2. AMITRIPTYLIN-DURA 25 MG [Suspect]
     Active Substance: AMITRIPTYLINE HYDROCHLORIDE
     Indication: PRODUCT USED FOR UNKNOWN INDICATION
     Dosage: 25 MG, BID
     Route: 048

REACTIONS (3)
  - Vomiting [Recovered/Resolved]
  - Poisoning [Recovered/Resolved]
  - Nausea [Recovered/Resolved]
